FAERS Safety Report 6531463-3 (Version None)
Quarter: 2009Q4

REPORT INFORMATION
  Report Type: 
  Country: None (occurrence: None)
  Receive Date: 20091222
  Receipt Date: 20091026
  Transmission Date: 20100525
  Serious: No
  Sender: FDA-Public Use
  Company Number: ALL1-2009-03363

PATIENT
  Age: 7 Year
  Sex: Male
  Weight: 26.8 kg

DRUGS (3)
  1. VYVANSE [Suspect]
     Indication: ATTENTION DEFICIT/HYPERACTIVITY DISORDER
     Dosage: 20 MG, 1X/DAY:QD, ORAL
     Route: 048
     Dates: start: 20060101, end: 20090901
  2. VYVANSE [Suspect]
     Indication: AUTISM
     Dosage: 20 MG, 1X/DAY:QD, ORAL
     Route: 048
     Dates: start: 20060101, end: 20090901
  3. VITAMINS NOS (VITAMINS NOS) [Concomitant]

REACTIONS (2)
  - INFLUENZA [None]
  - OFF LABEL USE [None]
